FAERS Safety Report 12555866 (Version 1)
Quarter: 2016Q3

REPORT INFORMATION
  Report Type: Spontaneous
  Country: GB (occurrence: GB)
  Receive Date: 20160714
  Receipt Date: 20160714
  Transmission Date: 20161109
  Serious: Yes (Hospitalization)
  Sender: FDA-Public Use
  Company Number: GB-TEVA-674254ACC

PATIENT
  Age: 35 Year
  Sex: Female

DRUGS (3)
  1. NAPROXEN. [Suspect]
     Active Substance: NAPROXEN
     Dosage: 1000 MILLIGRAM DAILY;
     Route: 048
     Dates: start: 20151210
  2. PARACETAMOL AND DIHYDROCODEINE [Concomitant]
  3. ESOMEPRAZOLE [Concomitant]
     Active Substance: ESOMEPRAZOLE

REACTIONS (6)
  - Dyspnoea [Unknown]
  - Malaise [Unknown]
  - Abdominal distension [Unknown]
  - Gastrooesophageal reflux disease [Unknown]
  - Anaemia [Recovering/Resolving]
  - Sensation of foreign body [Unknown]

NARRATIVE: CASE EVENT DATE: 201601
